FAERS Safety Report 6768183-6 (Version None)
Quarter: 2010Q2

REPORT INFORMATION
  Report Type: 
  Country: None (occurrence: None)
  Receive Date: 20100610
  Receipt Date: 20100526
  Transmission Date: 20101027
  Serious: Yes (Hospitalization)
  Sender: FDA-Public Use
  Company Number: GERAB-09-0446

PATIENT
  Age: 48 Year
  Sex: Female

DRUGS (1)
  1. ABRAXANE [Suspect]
     Indication: NEOPLASM MALIGNANT
     Dosage: (150 MG)
     Dates: start: 20090910

REACTIONS (1)
  - LEUKOCYTOCLASTIC VASCULITIS [None]
